FAERS Safety Report 15834230 (Version 1)
Quarter: 2019Q1

REPORT INFORMATION
  Report Type: Spontaneous
  Country: RU (occurrence: RU)
  Receive Date: 20190116
  Receipt Date: 20190116
  Transmission Date: 20190417
  Serious: Yes (Other)
  Sender: FDA-Public Use
  Company Number: PHHY2018RU200641

PATIENT
  Age: 51 Year
  Sex: Female

DRUGS (7)
  1. L-THYROXINE [Concomitant]
     Active Substance: LEVOTHYROXINE
     Indication: AUTOIMMUNE THYROIDITIS
     Dosage: UNK
     Route: 048
     Dates: start: 20081231, end: 20181129
  2. CEFTRIAXONE. [Concomitant]
     Active Substance: CEFTRIAXONE
     Indication: ENDOCARDITIS
     Dosage: UNK
     Route: 042
     Dates: start: 20181018, end: 20181028
  3. CUBICIN [Concomitant]
     Active Substance: DAPTOMYCIN
     Indication: ENDOCARDITIS
     Dosage: UNK
     Route: 042
     Dates: start: 20181103, end: 20181115
  4. EDICIN [Suspect]
     Active Substance: VANCOMYCIN HYDROCHLORIDE
     Indication: ENDOCARDITIS
     Dosage: 1 G, QD
     Route: 042
     Dates: start: 20181102, end: 20181102
  5. CARVEDILOL SANDOZ [Concomitant]
     Active Substance: CARVEDILOL
     Indication: PRODUCT USED FOR UNKNOWN INDICATION
     Dosage: UNK
     Route: 048
     Dates: start: 20151221, end: 20181129
  6. ENALAPRIL [Concomitant]
     Active Substance: ENALAPRIL
     Indication: PRODUCT USED FOR UNKNOWN INDICATION
     Dosage: UNK
     Route: 048
     Dates: start: 20181018, end: 20181129
  7. WARFARIN NYCOMED [Concomitant]
     Indication: PRODUCT USED FOR UNKNOWN INDICATION
     Dosage: UNK
     Route: 048
     Dates: start: 20181018, end: 20181129

REACTIONS (3)
  - Pruritus [Recovered/Resolved]
  - Swelling face [Recovered/Resolved]
  - Hyperaemia [Recovered/Resolved]

NARRATIVE: CASE EVENT DATE: 20181102
